FAERS Safety Report 7066026-7 (Version None)
Quarter: 2010Q4

REPORT INFORMATION
  Report Type: 
  Country: None (occurrence: None)
  Receive Date: 20101027
  Receipt Date: 20100422
  Transmission Date: 20110411
  Serious: Yes (Other)
  Sender: FDA-Public Use
  Company Number: HQWYE227703NOV04

PATIENT
  Sex: Female
  Weight: 53.12 kg

DRUGS (3)
  1. PREMPRO [Suspect]
     Dosage: UNKNOWN
     Route: 048
     Dates: start: 19980101, end: 20030101
  2. LIPITOR [Concomitant]
  3. ACTIVELLA [Suspect]

REACTIONS (1)
  - BREAST CANCER [None]
